FAERS Safety Report 25396836 (Version 1)
Quarter: 2025Q2

REPORT INFORMATION
  Report Type: Spontaneous
  Country: CA (occurrence: CA)
  Receive Date: 20250604
  Receipt Date: 20250604
  Transmission Date: 20250716
  Serious: Yes (Death, Life-Threatening, Hospitalization, Disabling, Other)
  Sender: MYLAN
  Company Number: CA-MYLANLABS-2023M1044809

PATIENT
  Age: 43 Year
  Sex: Female
  Weight: 96 kg

DRUGS (520)
  1. LYRICA [Suspect]
     Active Substance: PREGABALIN
     Indication: Fibromyalgia
  2. PYRIDOXINE [Suspect]
     Active Substance: PYRIDOXINE
     Indication: Product used for unknown indication
  3. VITAMIN C [Suspect]
     Active Substance: ASCORBIC ACID
     Indication: Product used for unknown indication
  4. CELEBREX [Suspect]
     Active Substance: CELECOXIB
     Indication: Rheumatoid arthritis
  5. CELEBREX [Suspect]
     Active Substance: CELECOXIB
  6. CELEBREX [Suspect]
     Active Substance: CELECOXIB
  7. CELEBREX [Suspect]
     Active Substance: CELECOXIB
     Dosage: 2 DOSAGE FORM, QD  (1 EVERY 1 DAYS)
  8. CELEBREX [Suspect]
     Active Substance: CELECOXIB
     Dosage: 1 DOSAGE FORM, QD  (1 EVERY 1 DAYS)
  9. CELEBREX [Suspect]
     Active Substance: CELECOXIB
     Dosage: UNK, QD  (1 EVERY 1 DAYS)
  10. CELEBREX [Suspect]
     Active Substance: CELECOXIB
     Dosage: 2 DOSAGE FORM, QD  (1 EVERY 1 DAYS)
  11. AIMOVIG [Suspect]
     Active Substance: ERENUMAB-AOOE
     Indication: Migraine
  12. ATOMOXETINE HYDROCHLORIDE [Suspect]
     Active Substance: ATOMOXETINE HYDROCHLORIDE
     Indication: Migraine
  13. FLUTICASONE FUROATE [Suspect]
     Active Substance: FLUTICASONE FUROATE
     Indication: Product used for unknown indication
  14. FLUTICASONE FUROATE [Suspect]
     Active Substance: FLUTICASONE FUROATE
     Dosage: 1 DOSAGE FORM, QD (1 EVERY 1 DAYS)
  15. BETAMETHASONE VALERATE [Suspect]
     Active Substance: BETAMETHASONE VALERATE
     Indication: Product used for unknown indication
  16. BETAMETHASONE VALERATE [Suspect]
     Active Substance: BETAMETHASONE VALERATE
     Dosage: 1 DOSAGE FORM, QD (1 EVERY 1 DAYS)
  17. BETAMETHASONE VALERATE [Suspect]
     Active Substance: BETAMETHASONE VALERATE
     Dosage: 1 DOSAGE FORM, QD (1 EVERY 1 DAYS)
  18. VITAMIN C [Suspect]
     Active Substance: ASCORBIC ACID
     Indication: Product used for unknown indication
  19. BOTULINUM TOXIN TYPE A [Suspect]
     Active Substance: BOTULINUM TOXIN TYPE A
     Indication: Migraine
  20. BOTULINUM TOXIN TYPE A [Suspect]
     Active Substance: BOTULINUM TOXIN TYPE A
     Dosage: UNK, QD (1 EVERY 1 DAYS)
  21. BOTULINUM TOXIN TYPE A [Suspect]
     Active Substance: BOTULINUM TOXIN TYPE A
  22. CALCIUM [Suspect]
     Active Substance: CALCIUM
     Indication: Product used for unknown indication
  23. BUTRANS [Suspect]
     Active Substance: BUPRENORPHINE
     Indication: Product used for unknown indication
  24. BUTRANS [Suspect]
     Active Substance: BUPRENORPHINE
  25. CALCIUM PANTOTHENATE [Suspect]
     Active Substance: CALCIUM PANTOTHENATE
     Indication: Product used for unknown indication
  26. CALCIUM PANTOTHENATE [Suspect]
     Active Substance: CALCIUM PANTOTHENATE
  27. CANDESARTAN CILEXETIL [Suspect]
     Active Substance: CANDESARTAN CILEXETIL
     Indication: Migraine
  28. CETIRIZINE [Suspect]
     Active Substance: CETIRIZINE HYDROCHLORIDE
     Indication: Rheumatoid arthritis
  29. CETIRIZINE [Suspect]
     Active Substance: CETIRIZINE HYDROCHLORIDE
     Indication: Off label use
  30. CETIRIZINE [Suspect]
     Active Substance: CETIRIZINE HYDROCHLORIDE
  31. CETIRIZINE [Suspect]
     Active Substance: CETIRIZINE HYDROCHLORIDE
     Dosage: 10 MILLIGRAM, QD (1 EVERY 1 DAYS)
  32. CETIRIZINE HYDROCHLORIDE [Suspect]
     Active Substance: CETIRIZINE HYDROCHLORIDE
     Indication: Product used for unknown indication
  33. CETIRIZINE HYDROCHLORIDE [Suspect]
     Active Substance: CETIRIZINE HYDROCHLORIDE
     Dosage: 3 DOSAGE FORM, BID (2 EVERY 1 DAYS)
  34. CETIRIZINE HYDROCHLORIDE [Suspect]
     Active Substance: CETIRIZINE HYDROCHLORIDE
     Dosage: 3 DOSAGE FORM, QD (1 EVERY 1 DAYS)
  35. CETIRIZINE HYDROCHLORIDE [Suspect]
     Active Substance: CETIRIZINE HYDROCHLORIDE
  36. CETIRIZINE HYDROCHLORIDE [Suspect]
     Active Substance: CETIRIZINE HYDROCHLORIDE
     Dosage: 1 DOSAGE FORM, QD (1 EVERY 1 DAYS)
  37. CETIRIZINE HYDROCHLORIDE [Suspect]
     Active Substance: CETIRIZINE HYDROCHLORIDE
     Indication: Rheumatoid arthritis
  38. CETIRIZINE HYDROCHLORIDE [Suspect]
     Active Substance: CETIRIZINE HYDROCHLORIDE
  39. CETIRIZINE HYDROCHLORIDE [Suspect]
     Active Substance: CETIRIZINE HYDROCHLORIDE
  40. TRICHOLINE CITRATE [Suspect]
     Active Substance: TRICHOLINE CITRATE
     Indication: Product used for unknown indication
  41. CYANOCOBALAMIN [Suspect]
     Active Substance: CYANOCOBALAMIN
     Indication: Product used for unknown indication
  42. DOMPERIDONE MALEATE [Suspect]
     Active Substance: DOMPERIDONE MALEATE
     Indication: Product used for unknown indication
  43. DOMPERIDONE MALEATE [Suspect]
     Active Substance: DOMPERIDONE MALEATE
     Dosage: 1 DOSAGE FORM, QD (1 EVERY 1 DAYS)
  44. DOMPERIDONE MALEATE [Suspect]
     Active Substance: DOMPERIDONE MALEATE
  45. DOMPERIDONE MALEATE [Suspect]
     Active Substance: DOMPERIDONE MALEATE
  46. DOMPERIDONE MALEATE [Suspect]
     Active Substance: DOMPERIDONE MALEATE
  47. DOMPERIDONE MALEATE [Suspect]
     Active Substance: DOMPERIDONE MALEATE
  48. DOMPERIDONE\PANTOPRAZOLE SODIUM [Suspect]
     Active Substance: DOMPERIDONE\PANTOPRAZOLE SODIUM
     Indication: Product used for unknown indication
  49. FETZIMA [Suspect]
     Active Substance: LEVOMILNACIPRAN HYDROCHLORIDE
     Indication: Product used for unknown indication
  50. FETZIMA [Suspect]
     Active Substance: LEVOMILNACIPRAN HYDROCHLORIDE
     Dosage: 1 DOSAGE FORM, QD (1 EVERY 1 DAYS)
  51. FINACEA [Suspect]
     Active Substance: AZELAIC ACID
     Indication: Product used for unknown indication
  52. HYDROMORPHONE [Suspect]
     Active Substance: HYDROMORPHONE
     Indication: Product used for unknown indication
  53. HYDROMORPHONE [Suspect]
     Active Substance: HYDROMORPHONE
     Dosage: 1 DOSAGE FORM, BID (2 EVERY 1 DAYS)
  54. HYDROMORPHONE [Suspect]
     Active Substance: HYDROMORPHONE
  55. HYDROMORPHONE [Suspect]
     Active Substance: HYDROMORPHONE
     Dosage: 1 DOSAGE FORM, QD (1 EVERY 1 DAYS)
  56. HYDROMORPHONE [Suspect]
     Active Substance: HYDROMORPHONE
     Dosage: 2 DOSAGE FORM, BID (2 EVERY 1 DAYS)
  57. LAMICTAL [Suspect]
     Active Substance: LAMOTRIGINE
     Indication: Product used for unknown indication
  58. LAMICTAL [Suspect]
     Active Substance: LAMOTRIGINE
  59. LAMICTAL [Suspect]
     Active Substance: LAMOTRIGINE
     Dosage: 25 MILLIGRAM, BID (2 EVERY 1 DAYS)
  60. LAMICTAL [Suspect]
     Active Substance: LAMOTRIGINE
     Dosage: 50 MILLIGRAM, BID (2 EVERY 1 DAYS)
  61. LAMICTAL [Suspect]
     Active Substance: LAMOTRIGINE
     Dosage: 50 MILLIGRAM, BID (2 EVERY 1 DAYS)
  62. LAMICTAL [Suspect]
     Active Substance: LAMOTRIGINE
     Dosage: 50 MILLIGRAM, QD (1 EVERY 1 DAYS)
  63. LAMICTAL [Suspect]
     Active Substance: LAMOTRIGINE
     Dosage: 25 MILLIGRAM, QD (1 EVERY 1 DAYS)
  64. LAMICTAL [Suspect]
     Active Substance: LAMOTRIGINE
     Dosage: 25 MILLIGRAM, BID (2 EVERY 1 DAYS)
  65. MAGNESIUM [Suspect]
     Active Substance: MAGNESIUM
     Indication: Product used for unknown indication
  66. MYRBETRIQ [Suspect]
     Active Substance: MIRABEGRON
     Indication: Product used for unknown indication
  67. NAPROXEN [Suspect]
     Active Substance: NAPROXEN
     Indication: Rheumatoid arthritis
  68. NAPROXEN [Suspect]
     Active Substance: NAPROXEN
     Dosage: 1000 MILLIGRAM, QD (1 EVERY 1 DAYS)
  69. PANTOPRAZOLE SODIUM [Suspect]
     Active Substance: PANTOPRAZOLE SODIUM
     Indication: Product used for unknown indication
     Dosage: 2 DOSAGE FORM, QD (1 EVERY 1 DAYS)
  70. PANTOPRAZOLE SODIUM [Suspect]
     Active Substance: PANTOPRAZOLE SODIUM
     Dosage: 1 DOSAGE FORM, BID (2 EVERY 1 DAYS)
  71. PANTOPRAZOLE SODIUM [Suspect]
     Active Substance: PANTOPRAZOLE SODIUM
     Dosage: 1 DOSAGE FORM, TID (3 EVERY 1 DAYS)
  72. PANTOPRAZOLE SODIUM [Suspect]
     Active Substance: PANTOPRAZOLE SODIUM
  73. PANTOPRAZOLE SODIUM [Suspect]
     Active Substance: PANTOPRAZOLE SODIUM
     Dosage: 1 DOSAGE FORM, BID (1 EVERY 12 HOURS)
  74. PANTOPRAZOLE SODIUM [Suspect]
     Active Substance: PANTOPRAZOLE SODIUM
     Dosage: 1 DOSAGE FORM, QD (1 EVERY 1 DAYS)
  75. PANTOPRAZOLE SODIUM [Suspect]
     Active Substance: PANTOPRAZOLE SODIUM
  76. PHOSPHORUS [Suspect]
     Active Substance: PHOSPHORUS
     Indication: Product used for unknown indication
  77. PREDNICARBATE [Suspect]
     Active Substance: PREDNICARBATE
     Indication: Product used for unknown indication
  78. PSEUDOEPHEDRINE [Suspect]
     Active Substance: PSEUDOEPHEDRINE
     Indication: Product used for unknown indication
  79. PSEUDOEPHEDRINE [Suspect]
     Active Substance: PSEUDOEPHEDRINE
  80. PSEUDOEPHEDRINE HYDROCHLORIDE [Suspect]
     Active Substance: PSEUDOEPHEDRINE HYDROCHLORIDE
     Indication: Product used for unknown indication
  81. PSEUDOEPHEDRINE HYDROCHLORIDE [Suspect]
     Active Substance: PSEUDOEPHEDRINE HYDROCHLORIDE
  82. RANITIDINE HYDROCHLORIDE [Suspect]
     Active Substance: RANITIDINE HYDROCHLORIDE
     Indication: Product used for unknown indication
  83. RIBOFLAVIN [Suspect]
     Active Substance: RIBOFLAVIN
     Indication: Product used for unknown indication
  84. STRATTERA [Suspect]
     Active Substance: ATOMOXETINE HYDROCHLORIDE
     Indication: Migraine
  85. THIAMINE HYDROCHLORIDE [Suspect]
     Active Substance: THIAMINE HYDROCHLORIDE
     Indication: Product used for unknown indication
  86. TOPICORT [Suspect]
     Active Substance: DESOXIMETASONE
     Indication: Rheumatoid arthritis
     Dosage: 25 MILLIGRAM, BID (1 EVERY 12 HOURS)
  87. TOPICORT [Suspect]
     Active Substance: DESOXIMETASONE
     Dosage: 1 DOSAGE FORM, BID (1 EVERY 12 HOURS)
  88. TOPICORT [Suspect]
     Active Substance: DESOXIMETASONE
  89. TOPICORT [Suspect]
     Active Substance: DESOXIMETASONE
  90. TOPICORT [Suspect]
     Active Substance: DESOXIMETASONE
  91. TOPICORT [Suspect]
     Active Substance: DESOXIMETASONE
     Dosage: 25 MILLIGRAM, QW (1 EVERY 1 WEEK)
  92. TOPIRAMATE [Suspect]
     Active Substance: TOPIRAMATE
     Indication: Migraine
     Dosage: 25 MILLIGRAM, QD (1 EVERY 1 DAYS)
  93. TOPIRAMATE [Suspect]
     Active Substance: TOPIRAMATE
     Dosage: 25 MILLIGRAM, QD (1 EVERY 1 DAYS)
  94. TOPIRAMATE [Suspect]
     Active Substance: TOPIRAMATE
  95. TRAZODONE [Suspect]
     Active Substance: TRAZODONE HYDROCHLORIDE
     Indication: Product used for unknown indication
  96. TRAZODONE [Suspect]
     Active Substance: TRAZODONE HYDROCHLORIDE
     Dosage: 1 DOSAGE FORM, QD (1 EVERY 1 DAYS)
  97. TRETINOIN [Suspect]
     Active Substance: TRETINOIN
     Indication: Product used for unknown indication
  98. TRETINOIN [Suspect]
     Active Substance: TRETINOIN
  99. VITAMIN A [Suspect]
     Active Substance: VITAMIN A
     Indication: Product used for unknown indication
  100. VITAMIN D3 [Suspect]
     Active Substance: CHOLECALCIFEROL
     Indication: Product used for unknown indication
  101. VITAMIN D3 [Suspect]
     Active Substance: CHOLECALCIFEROL
  102. VITAMIN D3 [Suspect]
     Active Substance: CHOLECALCIFEROL
     Indication: Product used for unknown indication
  103. CYCLOBENZAPRINE [Suspect]
     Active Substance: CYCLOBENZAPRINE
     Indication: Product used for unknown indication
  104. CYCLOBENZAPRINE [Suspect]
     Active Substance: CYCLOBENZAPRINE
  105. ACETAMINOPHEN [Suspect]
     Active Substance: ACETAMINOPHEN
     Indication: Rheumatoid arthritis
  106. ACETAMINOPHEN [Suspect]
     Active Substance: ACETAMINOPHEN
  107. AIMOVIG [Suspect]
     Active Substance: ERENUMAB-AOOE
     Indication: Migraine
  108. AIMOVIG [Suspect]
     Active Substance: ERENUMAB-AOOE
     Dosage: 1 DOSAGE FORM, QD (1 EVERY 1 DAY)
  109. ATOMOXETINE [Suspect]
     Active Substance: ATOMOXETINE
     Indication: Migraine
  110. ATOMOXETINE [Suspect]
     Active Substance: ATOMOXETINE
     Dosage: 1 DOSAGE FORM, QD (1 EVERY 1 DAYS)
  111. ATOMOXETINE HYDROCHLORIDE [Suspect]
     Active Substance: ATOMOXETINE HYDROCHLORIDE
     Indication: Migraine
  112. ATOMOXETINE HYDROCHLORIDE [Suspect]
     Active Substance: ATOMOXETINE HYDROCHLORIDE
     Dosage: 1 DOSAGE FORM, QD (1 EVERY 1 DAYS)
  113. ATOMOXETINE HYDROCHLORIDE [Suspect]
     Active Substance: ATOMOXETINE HYDROCHLORIDE
  114. ATOMOXETINE HYDROCHLORIDE [Suspect]
     Active Substance: ATOMOXETINE HYDROCHLORIDE
  115. ATOMOXETINE HYDROCHLORIDE [Suspect]
     Active Substance: ATOMOXETINE HYDROCHLORIDE
     Dosage: 1 DOSAGE FORM, QD (1 EVERY 1 DAYS)
  116. AZELAIC ACID [Suspect]
     Active Substance: AZELAIC ACID
     Indication: Product used for unknown indication
     Dosage: 2 DOSAGE FORM, QD (1 EVERY 1 DAYS)
  117. AZELAIC ACID [Suspect]
     Active Substance: AZELAIC ACID
  118. BUPRENORPHINE [Suspect]
     Active Substance: BUPRENORPHINE
     Indication: Product used for unknown indication
  119. CALCIUM GLUCONATE [Suspect]
     Active Substance: CALCIUM GLUCONATE
     Indication: Product used for unknown indication
  120. CALCIUM\CHOLECALCIFEROL\MAGNESIUM [Suspect]
     Active Substance: CALCIUM\CHOLECALCIFEROL\MAGNESIUM
     Indication: Product used for unknown indication
     Dosage: 1 DOSAGE FORM, QD (1 EVERY 1 DAYS)
  121. CANDESARTAN [Suspect]
     Active Substance: CANDESARTAN
     Indication: Migraine
  122. CETIRIZINE [Suspect]
     Active Substance: CETIRIZINE HYDROCHLORIDE
     Indication: Rheumatoid arthritis
  123. CETIRIZINE [Suspect]
     Active Substance: CETIRIZINE HYDROCHLORIDE
  124. CETIRIZINE [Suspect]
     Active Substance: CETIRIZINE HYDROCHLORIDE
  125. CETIRIZINE [Suspect]
     Active Substance: CETIRIZINE HYDROCHLORIDE
  126. CETIRIZINE [Suspect]
     Active Substance: CETIRIZINE HYDROCHLORIDE
     Dosage: 10 MILLIGRAM, QD (1 EVERY 1 DAYS)
  127. CETIRIZINE [Suspect]
     Active Substance: CETIRIZINE HYDROCHLORIDE
  128. CETIRIZINE [Suspect]
     Active Substance: CETIRIZINE HYDROCHLORIDE
  129. CETIRIZINE HYDROCHLORIDE\PSEUDOEPHEDRINE HYDROCHLORIDE [Suspect]
     Active Substance: CETIRIZINE HYDROCHLORIDE\PSEUDOEPHEDRINE HYDROCHLORIDE
     Indication: Product used for unknown indication
     Dosage: 1 DOSAGE FORM, QD (1 EVERY 1 DAYS)
  130. CORTISONE [Suspect]
     Active Substance: CORTISONE
     Indication: Product used for unknown indication
     Dosage: 2 DOSAGE FORM, QD (1 EVERY 1 DAYS)
  131. CORTISONE [Suspect]
     Active Substance: CORTISONE
     Dosage: 25 MILLIGRAM, QD (1 EVERY 1 DAYS)
  132. CORTISONE [Suspect]
     Active Substance: CORTISONE
     Dosage: 25 MILLIGRAM, QD (1 EVERY 1 DAYS)
  133. CYCLOBENZAPRINE HYDROCHLORIDE [Suspect]
     Active Substance: CYCLOBENZAPRINE HYDROCHLORIDE
     Indication: Product used for unknown indication
  134. CYCLOBENZAPRINE HYDROCHLORIDE [Suspect]
     Active Substance: CYCLOBENZAPRINE HYDROCHLORIDE
     Dosage: 1 DOSAGE FORM, QD (1 EVERY 1 DAYS)
  135. DESOXIMETASONE [Suspect]
     Active Substance: DESOXIMETASONE
     Indication: Product used for unknown indication
  136. DESOXIMETASONE [Suspect]
     Active Substance: DESOXIMETASONE
     Dosage: 25 MILLIGRAM, BID (2 EVERY 1 DAYS)
  137. DESOXIMETASONE [Suspect]
     Active Substance: DESOXIMETASONE
     Dosage: 2 DOSAGE FORM, QD (1 EVERY 1 DAYS)
  138. DESOXIMETASONE [Suspect]
     Active Substance: DESOXIMETASONE
     Dosage: 2 DOSAGE FORM, QD (1 EVERY 1 DAYS)
  139. DESOXIMETASONE [Suspect]
     Active Substance: DESOXIMETASONE
     Dosage: 1 DOSAGE FORM, BID (2 EVERY 1 DAYS)
  140. DESOXIMETASONE [Suspect]
     Active Substance: DESOXIMETASONE
     Dosage: UNK, BID (2 EVERY 1 DAYS)
  141. DESOXIMETASONE [Suspect]
     Active Substance: DESOXIMETASONE
  142. DESOXIMETASONE [Suspect]
     Active Substance: DESOXIMETASONE
     Dosage: 3 MILLIGRAM, QD (1 EVERY 1 DAYS)
  143. DESOXIMETASONE [Suspect]
     Active Substance: DESOXIMETASONE
     Indication: Product used for unknown indication
     Dosage: 2 DOSAGE FORM, QD (1 EVERY 1 DAYS)
  144. DESOXIMETASONE [Suspect]
     Active Substance: DESOXIMETASONE
     Dosage: 25 MILLIGRAM, QD (1 EVERY 1 DAYS)
  145. DESOXIMETASONE [Suspect]
     Active Substance: DESOXIMETASONE
  146. DESOXIMETASONE [Suspect]
     Active Substance: DESOXIMETASONE
  147. DEXPANTHENOL [Suspect]
     Active Substance: DEXPANTHENOL
     Indication: Product used for unknown indication
  148. DOMPERIDONE [Suspect]
     Active Substance: DOMPERIDONE
     Indication: Product used for unknown indication
     Dosage: 1 DOSAGE FORM, TID (3 EVERY 1 DAYS)
  149. DOMPERIDONE [Suspect]
     Active Substance: DOMPERIDONE
  150. DOMPERIDONE [Suspect]
     Active Substance: DOMPERIDONE
  151. DOMPERIDONE [Suspect]
     Active Substance: DOMPERIDONE
  152. DOMPERIDONE [Suspect]
     Active Substance: DOMPERIDONE
     Dosage: 1 DOSAGE FORM, QID (4 EVERY 1 DAYS)
  153. ERENUMAB [Suspect]
     Active Substance: ERENUMAB
     Indication: Migraine
  154. ERGOCALCIFEROL [Suspect]
     Active Substance: ERGOCALCIFEROL
     Indication: Product used for unknown indication
  155. ERGOCALCIFEROL [Suspect]
     Active Substance: ERGOCALCIFEROL
  156. FETZIMA [Suspect]
     Active Substance: LEVOMILNACIPRAN HYDROCHLORIDE
     Indication: Product used for unknown indication
     Dosage: 1 DOSAGE FORM, QD (1 EVERY 1 DAYS)
  157. FETZIMA [Suspect]
     Active Substance: LEVOMILNACIPRAN HYDROCHLORIDE
  158. FLUTICASONE FUROATE [Suspect]
     Active Substance: FLUTICASONE FUROATE
     Indication: Product used for unknown indication
     Dosage: 1 DOSAGE FORM, QD (1 EVERY 1 DAYS)
  159. FOLIC ACID [Suspect]
     Active Substance: FOLIC ACID
     Indication: Rheumatoid arthritis
  160. FOLIC ACID [Suspect]
     Active Substance: FOLIC ACID
  161. FOLIC ACID [Suspect]
     Active Substance: FOLIC ACID
  162. FOLIC ACID [Suspect]
     Active Substance: FOLIC ACID
  163. FOLIC ACID [Suspect]
     Active Substance: FOLIC ACID
  164. FOLIC ACID [Suspect]
     Active Substance: FOLIC ACID
  165. FOLIC ACID [Suspect]
     Active Substance: FOLIC ACID
  166. FOLIC ACID [Suspect]
     Active Substance: FOLIC ACID
  167. FOLIC ACID [Suspect]
     Active Substance: FOLIC ACID
  168. FOLIC ACID [Suspect]
     Active Substance: FOLIC ACID
  169. FOLIC ACID [Suspect]
     Active Substance: FOLIC ACID
  170. FOLIC ACID [Suspect]
     Active Substance: FOLIC ACID
  171. FOLIC ACID [Suspect]
     Active Substance: FOLIC ACID
  172. FOLIC ACID [Suspect]
     Active Substance: FOLIC ACID
  173. FOLIC ACID [Suspect]
     Active Substance: FOLIC ACID
     Dosage: 5 MILLIGRAM, QD (1 EVERY 24 HOURS)
  174. FOLIC ACID [Suspect]
     Active Substance: FOLIC ACID
  175. HYDROMORPHONE HYDROCHLORIDE [Suspect]
     Active Substance: HYDROMORPHONE HYDROCHLORIDE
     Indication: Product used for unknown indication
     Dosage: 1 DOSAGE FORM, BID (2 EVERY 1 DAYS)
  176. LAMOTRIGINE [Suspect]
     Active Substance: LAMOTRIGINE
     Indication: Product used for unknown indication
     Dosage: 25 MILLIGRAM, BID (2 EVERY 1 DAYS)
  177. MILNACIPRAN HYDROCHLORIDE [Suspect]
     Active Substance: MILNACIPRAN HYDROCHLORIDE
     Indication: Product used for unknown indication
     Dosage: 1 DOSAGE FORM, QD (1 EVERY 1 DAYS)
  178. MYRBETRIQ [Suspect]
     Active Substance: MIRABEGRON
     Indication: Product used for unknown indication
  179. MYRBETRIQ [Suspect]
     Active Substance: MIRABEGRON
     Dosage: 1 DOSAGE FORM, QD (1 EVERY 1 DAYS)
  180. NAPROXEN [Suspect]
     Active Substance: NAPROXEN
     Indication: Product used for unknown indication
     Dosage: 1 DOSAGE FORM, BID (2 EVERY 1 DAYS)
  181. NAPROXEN [Suspect]
     Active Substance: NAPROXEN
  182. NAPROXEN [Suspect]
     Active Substance: NAPROXEN
     Dosage: 2 DOSAGE FORM, BID (1 EVERY 12 HOURS)
  183. NAPROXEN [Suspect]
     Active Substance: NAPROXEN
     Dosage: 1 DOSAGE FORM, QD (1 EVERY 1 DAYS)
  184. NAPROXEN [Suspect]
     Active Substance: NAPROXEN
     Dosage: 2 DOSAGE FORM, BID (2 EVERY 1 DAYS)
  185. NAPROXEN [Suspect]
     Active Substance: NAPROXEN
  186. VITAMINS [Suspect]
     Active Substance: VITAMINS
     Indication: Product used for unknown indication
  187. PANTOPRAZOLE [Suspect]
     Active Substance: PANTOPRAZOLE
     Indication: Product used for unknown indication
  188. PAROXETINE [Suspect]
     Active Substance: PAROXETINE
     Indication: Product used for unknown indication
  189. PAROXETINE HYDROCHLORIDE [Suspect]
     Active Substance: PAROXETINE HYDROCHLORIDE
     Indication: Product used for unknown indication
  190. RANITIDINE [Suspect]
     Active Substance: RANITIDINE
     Indication: Product used for unknown indication
  191. CETIRIZINE HYDROCHLORIDE [Suspect]
     Active Substance: CETIRIZINE HYDROCHLORIDE
     Indication: Product used for unknown indication
  192. CETIRIZINE HYDROCHLORIDE\PSEUDOEPHEDRINE HYDROCHLORIDE [Suspect]
     Active Substance: CETIRIZINE HYDROCHLORIDE\PSEUDOEPHEDRINE HYDROCHLORIDE
     Indication: Rheumatoid arthritis
  193. CETIRIZINE HYDROCHLORIDE\PSEUDOEPHEDRINE HYDROCHLORIDE [Suspect]
     Active Substance: CETIRIZINE HYDROCHLORIDE\PSEUDOEPHEDRINE HYDROCHLORIDE
  194. CETIRIZINE HYDROCHLORIDE\PSEUDOEPHEDRINE HYDROCHLORIDE [Suspect]
     Active Substance: CETIRIZINE HYDROCHLORIDE\PSEUDOEPHEDRINE HYDROCHLORIDE
  195. CETIRIZINE HYDROCHLORIDE\PSEUDOEPHEDRINE HYDROCHLORIDE [Suspect]
     Active Substance: CETIRIZINE HYDROCHLORIDE\PSEUDOEPHEDRINE HYDROCHLORIDE
     Dosage: 10 MILLIGRAM, QD (1 EVERY 1 DAYS)
  196. RIBOFLAVIN\THIAMINE HYDROCHLORIDE [Suspect]
     Active Substance: RIBOFLAVIN\THIAMINE HYDROCHLORIDE
     Indication: Product used for unknown indication
  197. TOPAMAX [Suspect]
     Active Substance: TOPIRAMATE
     Indication: Product used for unknown indication
     Dosage: 25 MILLIGRAM, QD (1 EVERY 1 DAYS)
  198. TRAZODONE HYDROCHLORIDE [Suspect]
     Active Substance: TRAZODONE HYDROCHLORIDE
     Indication: Product used for unknown indication
     Dosage: 1 DOSAGE FORM, QD (1 EVERY 1 DAYS)
  199. TRAZODONE HYDROCHLORIDE [Suspect]
     Active Substance: TRAZODONE HYDROCHLORIDE
  200. ACTEMRA [Suspect]
     Active Substance: TOCILIZUMAB
     Indication: Rheumatoid arthritis
  201. ACTEMRA [Suspect]
     Active Substance: TOCILIZUMAB
  202. ACTEMRA [Suspect]
     Active Substance: TOCILIZUMAB
  203. ACTEMRA [Suspect]
     Active Substance: TOCILIZUMAB
  204. ACTEMRA [Suspect]
     Active Substance: TOCILIZUMAB
  205. ACTEMRA [Suspect]
     Active Substance: TOCILIZUMAB
  206. ACTEMRA [Suspect]
     Active Substance: TOCILIZUMAB
  207. ACTEMRA [Suspect]
     Active Substance: TOCILIZUMAB
  208. ACTEMRA [Suspect]
     Active Substance: TOCILIZUMAB
  209. ACTEMRA [Suspect]
     Active Substance: TOCILIZUMAB
  210. ACTEMRA [Suspect]
     Active Substance: TOCILIZUMAB
  211. ADALIMUMAB [Suspect]
     Active Substance: ADALIMUMAB
     Indication: Rheumatoid arthritis
  212. ADALIMUMAB [Suspect]
     Active Substance: ADALIMUMAB
  213. ALENDRONIC ACID [Suspect]
     Active Substance: ALENDRONIC ACID
     Indication: Rheumatoid arthritis
  214. ALENDRONIC ACID [Suspect]
     Active Substance: ALENDRONIC ACID
  215. PREDNISONE [Suspect]
     Active Substance: PREDNISONE
     Indication: Rheumatoid arthritis
  216. PREDNISONE [Suspect]
     Active Substance: PREDNISONE
     Indication: Condition aggravated
  217. PREDNISONE [Suspect]
     Active Substance: PREDNISONE
  218. PREDNISONE [Suspect]
     Active Substance: PREDNISONE
  219. PREDNISONE [Suspect]
     Active Substance: PREDNISONE
  220. PREDNISONE [Suspect]
     Active Substance: PREDNISONE
  221. PREDNISONE [Suspect]
     Active Substance: PREDNISONE
  222. PREDNISONE [Suspect]
     Active Substance: PREDNISONE
  223. PREDNISONE [Suspect]
     Active Substance: PREDNISONE
  224. APREMILAST [Suspect]
     Active Substance: APREMILAST
     Indication: Product used for unknown indication
  225. ARAVA [Suspect]
     Active Substance: LEFLUNOMIDE
     Indication: Rheumatoid arthritis
  226. ARAVA [Suspect]
     Active Substance: LEFLUNOMIDE
  227. ARAVA [Suspect]
     Active Substance: LEFLUNOMIDE
     Dosage: 20 MILLIGRAM, QD (1 EVERY 1 DAYS)
  228. ARAVA [Suspect]
     Active Substance: LEFLUNOMIDE
  229. CALCIUM CARBONATE [Suspect]
     Active Substance: CALCIUM CARBONATE
     Indication: Product used for unknown indication
  230. CALCIUM CHLORIDE [Suspect]
     Active Substance: CALCIUM CHLORIDE
     Indication: Product used for unknown indication
  231. CALCIUM LACTATE [Suspect]
     Active Substance: CALCIUM LACTATE
     Indication: Product used for unknown indication
  232. CERTOLIZUMAB PEGOL [Suspect]
     Active Substance: CERTOLIZUMAB PEGOL
     Indication: Product used for unknown indication
  233. CIMZIA [Suspect]
     Active Substance: CERTOLIZUMAB PEGOL
     Indication: Rheumatoid arthritis
  234. CIMZIA [Suspect]
     Active Substance: CERTOLIZUMAB PEGOL
     Indication: Psoriasis
  235. CIMZIA [Suspect]
     Active Substance: CERTOLIZUMAB PEGOL
  236. CORTISONE ACETATE [Suspect]
     Active Substance: CORTISONE ACETATE
     Indication: Rheumatoid arthritis
  237. CORTISONE ACETATE [Suspect]
     Active Substance: CORTISONE ACETATE
  238. CORTISONE ACETATE [Suspect]
     Active Substance: CORTISONE ACETATE
  239. CORTISONE ACETATE [Suspect]
     Active Substance: CORTISONE ACETATE
  240. CORTISONE ACETATE [Suspect]
     Active Substance: CORTISONE ACETATE
  241. CORTISONE ACETATE [Suspect]
     Active Substance: CORTISONE ACETATE
  242. CORTISONE ACETATE [Suspect]
     Active Substance: CORTISONE ACETATE
  243. CORTISONE ACETATE [Suspect]
     Active Substance: CORTISONE ACETATE
  244. CORTISONE ACETATE [Suspect]
     Active Substance: CORTISONE ACETATE
  245. COSENTYX [Suspect]
     Active Substance: SECUKINUMAB
     Indication: Psoriatic arthropathy
  246. DESOXIMETASONE [Suspect]
     Active Substance: DESOXIMETASONE
     Indication: Rheumatoid arthritis
  247. DESOXIMETASONE [Suspect]
     Active Substance: DESOXIMETASONE
  248. DESOXIMETASONE [Suspect]
     Active Substance: DESOXIMETASONE
  249. DESOXIMETASONE [Suspect]
     Active Substance: DESOXIMETASONE
  250. DESOXIMETASONE [Suspect]
     Active Substance: DESOXIMETASONE
     Dosage: 25 MILLIGRAM, QW (1 EVERY 1 WEEK)
  251. DICLOFENAC DIETHYLAMINE [Suspect]
     Active Substance: DICLOFENAC DIETHYLAMINE
     Indication: Product used for unknown indication
  252. DICLOFENAC SODIUM [Suspect]
     Active Substance: DICLOFENAC SODIUM
     Indication: Product used for unknown indication
  253. DICLOFENAC SODIUM [Suspect]
     Active Substance: DICLOFENAC SODIUM
  254. DICLOFENAC SODIUM [Suspect]
     Active Substance: DICLOFENAC SODIUM
  255. DICLOFENAC SODIUM [Suspect]
     Active Substance: DICLOFENAC SODIUM
     Dosage: 50 MILLIGRAM, QD (1 EVERY 24 HOURS)
  256. DOXYCYCLINE [Suspect]
     Active Substance: DOXYCYCLINE
     Indication: Product used for unknown indication
  257. ENBREL [Suspect]
     Active Substance: ETANERCEPT
     Indication: Rheumatoid arthritis
     Dosage: 50 MILLIGRAM, QW (1 EVERY 1 WEEK)
  258. ENBREL [Suspect]
     Active Substance: ETANERCEPT
     Indication: Psoriatic arthropathy
  259. ENBREL [Suspect]
     Active Substance: ETANERCEPT
  260. ENBREL [Suspect]
     Active Substance: ETANERCEPT
  261. ENBREL [Suspect]
     Active Substance: ETANERCEPT
  262. ENBREL [Suspect]
     Active Substance: ETANERCEPT
  263. ENBREL [Suspect]
     Active Substance: ETANERCEPT
     Dosage: 50 MILLIGRAM, QD (1 EVERY 1 DAYS)
  264. ENBREL [Suspect]
     Active Substance: ETANERCEPT
  265. ENBREL [Suspect]
     Active Substance: ETANERCEPT
     Dosage: 20 MILLIGRAM, QW (1 EVERY 1 WEEK)
  266. ERELZI [Suspect]
     Active Substance: ETANERCEPT-SZZS
     Indication: Rheumatoid arthritis
  267. FLUMETHASONE PIVALATE [Suspect]
     Active Substance: FLUMETHASONE PIVALATE
     Indication: Rheumatoid arthritis
  268. FOSAMAX [Suspect]
     Active Substance: ALENDRONATE SODIUM
     Indication: Rheumatoid arthritis
  269. FOSAMAX [Suspect]
     Active Substance: ALENDRONATE SODIUM
  270. GOLIMUMAB [Suspect]
     Active Substance: GOLIMUMAB
     Indication: Product used for unknown indication
  271. HUMIRA [Suspect]
     Active Substance: ADALIMUMAB
     Indication: Rheumatoid arthritis
  272. HYDROCORTISONE [Suspect]
     Active Substance: HYDROCORTISONE
     Indication: Product used for unknown indication
  273. HYDROCORTISONE ACETATE [Suspect]
     Active Substance: HYDROCORTISONE ACETATE
     Indication: Rheumatoid arthritis
  274. HYDROCORTISONE ACETATE [Suspect]
     Active Substance: HYDROCORTISONE ACETATE
  275. HYDROCORTISONE ACETATE [Suspect]
     Active Substance: HYDROCORTISONE ACETATE
  276. HYDROXYCHLOROQUINE [Suspect]
     Active Substance: HYDROXYCHLOROQUINE
     Indication: Rheumatoid arthritis
     Dosage: 400 MILLIGRAM, QD (1 EVERY 1 DAYS)
  277. HYDROXYCHLOROQUINE [Suspect]
     Active Substance: HYDROXYCHLOROQUINE
     Dosage: 400 MILLIGRAM, QD (1 EVERY 1 DAYS)
  278. HYDROXYCHLOROQUINE [Suspect]
     Active Substance: HYDROXYCHLOROQUINE
     Dosage: 400 MILLIGRAM, QD (1 EVERY 1 DAYS)
  279. HYDROXYCHLOROQUINE SULFATE [Suspect]
     Active Substance: HYDROXYCHLOROQUINE SULFATE
     Indication: Rheumatoid arthritis
     Dosage: 400 MILLIGRAM, QD (1 EVERY 1 DAYS)
  280. HYDROXYCHLOROQUINE SULFATE [Suspect]
     Active Substance: HYDROXYCHLOROQUINE SULFATE
     Dosage: 400 MILLIGRAM, QD (1 EVERY 1 DAYS)
  281. HYDROXYCHLOROQUINE SULFATE [Suspect]
     Active Substance: HYDROXYCHLOROQUINE SULFATE
     Dosage: 400 MILLIGRAM, BID (1 EVERY 12 HOURS)
  282. HYDROXYCHLOROQUINE SULFATE [Suspect]
     Active Substance: HYDROXYCHLOROQUINE SULFATE
  283. HYDROXYCHLOROQUINE SULFATE [Suspect]
     Active Substance: HYDROXYCHLOROQUINE SULFATE
     Dosage: UNK, QD (1 EVERY 1 DAYS)
  284. HYDROXYCHLOROQUINE SULFATE [Suspect]
     Active Substance: HYDROXYCHLOROQUINE SULFATE
     Dosage: 400 MILLIGRAM, QD (1 EVERY 1 DAYS)
  285. HYDROXYCHLOROQUINE SULFATE [Suspect]
     Active Substance: HYDROXYCHLOROQUINE SULFATE
  286. HYDROXYCHLOROQUINE SULFATE [Suspect]
     Active Substance: HYDROXYCHLOROQUINE SULFATE
     Dosage: 420 MILLIGRAM, QD (1 EVERY 1 DAYS)
  287. HYDROXYCHLOROQUINE SULFATE [Suspect]
     Active Substance: HYDROXYCHLOROQUINE SULFATE
  288. HYDROXYCHLOROQUINE SULFATE [Suspect]
     Active Substance: HYDROXYCHLOROQUINE SULFATE
     Dosage: UNK, QD (1 EVERY 1 DAYS)
  289. HYDROXYCHLOROQUINE SULFATE [Suspect]
     Active Substance: HYDROXYCHLOROQUINE SULFATE
     Dosage: 400 MILLIGRAM, BID (1 EVERY 12 HOURS)
  290. HYDROXYCHLOROQUINE SULFATE [Suspect]
     Active Substance: HYDROXYCHLOROQUINE SULFATE
     Dosage: UNK, QD (1 EVERY 1 DAYS)
  291. HYDROXYCHLOROQUINE SULFATE [Suspect]
     Active Substance: HYDROXYCHLOROQUINE SULFATE
     Dosage: UNK, QD (1 EVERY 1 DAYS)
  292. INFLIXIMAB [Suspect]
     Active Substance: INFLIXIMAB
     Indication: Rheumatoid arthritis
  293. INFLIXIMAB [Suspect]
     Active Substance: INFLIXIMAB
  294. ISOPROPYL ALCOHOL [Suspect]
     Active Substance: ISOPROPYL ALCOHOL
     Indication: Product used for unknown indication
  295. LEFLUNOMIDE [Suspect]
     Active Substance: LEFLUNOMIDE
     Indication: Rheumatoid arthritis
  296. LEFLUNOMIDE [Suspect]
     Active Substance: LEFLUNOMIDE
     Dosage: 20 MILLIGRAM, QD (1 EVERY 1 DAYS)
  297. METHOTREXATE [Suspect]
     Active Substance: METHOTREXATE
     Indication: Rheumatoid arthritis
     Dosage: 20 MILLIGRAM, QD (1 EVERY 1 DAYS)
  298. METHOTREXATE [Suspect]
     Active Substance: METHOTREXATE
     Dosage: 2 GRAM, QD (1 EVERY 1 DAYS)
  299. METHOTREXATE [Suspect]
     Active Substance: METHOTREXATE
     Dosage: 20 MILLIGRAM, QW (1 EVERY 1 WEEKS)
  300. METHOTREXATE [Suspect]
     Active Substance: METHOTREXATE
     Dosage: 15 MILLIGRAM, QD (1 EVERY 1 DAYS)
  301. METHOTREXATE [Suspect]
     Active Substance: METHOTREXATE
     Dosage: 25 MILLIGRAM, QD (1 EVERY 1 DAYS)
  302. METHOTREXATE [Suspect]
     Active Substance: METHOTREXATE
     Dosage: 20 MILLIGRAM, QD (1 EVERY 1 DAYS)
  303. MYCOPHENOLATE MOFETIL [Suspect]
     Active Substance: MYCOPHENOLATE MOFETIL
     Indication: Product used for unknown indication
  304. NAPROXEN SODIUM [Suspect]
     Active Substance: NAPROXEN SODIUM
     Indication: Rheumatoid arthritis
  305. NAPROXEN SODIUM [Suspect]
     Active Substance: NAPROXEN SODIUM
  306. NAPROXEN SODIUM [Suspect]
     Active Substance: NAPROXEN SODIUM
     Dosage: 500 MILLIGRAM, BID (2 EVERY 1 DAYS)
  307. ORENCIA [Suspect]
     Active Substance: ABATACEPT
     Indication: Rheumatoid arthritis
  308. ORENCIA [Suspect]
     Active Substance: ABATACEPT
  309. OTEZLA [Suspect]
     Active Substance: APREMILAST
     Indication: Rheumatoid arthritis
  310. OTEZLA [Suspect]
     Active Substance: APREMILAST
  311. PHTHALYLSULFATHIAZOLE [Suspect]
     Active Substance: PHTHALYLSULFATHIAZOLE
     Indication: Rheumatoid arthritis
  312. PHTHALYLSULFATHIAZOLE [Suspect]
     Active Substance: PHTHALYLSULFATHIAZOLE
     Dosage: 400 MILLIGRAM, QD (1 EVERY 1 DAYS)
  313. PHTHALYLSULFATHIAZOLE [Suspect]
     Active Substance: PHTHALYLSULFATHIAZOLE
  314. PHTHALYLSULFATHIAZOLE [Suspect]
     Active Substance: PHTHALYLSULFATHIAZOLE
     Dosage: 1000 MILLIGRAM, Q5D (1 EVERY 5 DAYS)
  315. PHTHALYLSULFATHIAZOLE [Suspect]
     Active Substance: PHTHALYLSULFATHIAZOLE
  316. PHTHALYLSULFATHIAZOLE [Suspect]
     Active Substance: PHTHALYLSULFATHIAZOLE
  317. PHTHALYLSULFATHIAZOLE [Suspect]
     Active Substance: PHTHALYLSULFATHIAZOLE
  318. PHTHALYLSULFATHIAZOLE [Suspect]
     Active Substance: PHTHALYLSULFATHIAZOLE
  319. PHTHALYLSULFATHIAZOLE [Suspect]
     Active Substance: PHTHALYLSULFATHIAZOLE
     Dosage: 1000 MILLIGRAM, BID (2 EVERY 1 DAY)
  320. PREDNISONE [Suspect]
     Active Substance: PREDNISONE
     Indication: Rheumatoid arthritis
     Dosage: 40 MILLIGRAM, QD (1 EVERY 1 DAYS)
  321. PREDNISONE [Suspect]
     Active Substance: PREDNISONE
     Indication: Condition aggravated
  322. PREDNISONE [Suspect]
     Active Substance: PREDNISONE
  323. PSEUDOEPHEDRINE HYDROCHLORIDE [Suspect]
     Active Substance: PSEUDOEPHEDRINE HYDROCHLORIDE
     Indication: Rheumatoid arthritis
  324. REMICADE [Suspect]
     Active Substance: INFLIXIMAB
     Indication: Rheumatoid arthritis
  325. REMICADE [Suspect]
     Active Substance: INFLIXIMAB
  326. REMICADE [Suspect]
     Active Substance: INFLIXIMAB
  327. REMICADE [Suspect]
     Active Substance: INFLIXIMAB
  328. RITUXIMAB [Suspect]
     Active Substance: RITUXIMAB
     Indication: Rheumatoid arthritis
  329. RITUXIMAB [Suspect]
     Active Substance: RITUXIMAB
  330. RITUXIMAB [Suspect]
     Active Substance: RITUXIMAB
  331. RITUXIMAB [Suspect]
     Active Substance: RITUXIMAB
  332. RITUXIMAB [Suspect]
     Active Substance: RITUXIMAB
  333. SIMPONI [Suspect]
     Active Substance: GOLIMUMAB
     Indication: Rheumatoid arthritis
  334. SIMPONI [Suspect]
     Active Substance: GOLIMUMAB
     Indication: Psoriatic arthropathy
  335. STELARA [Suspect]
     Active Substance: USTEKINUMAB
     Indication: Rheumatoid arthritis
  336. STELARA [Suspect]
     Active Substance: USTEKINUMAB
     Indication: Psoriatic arthropathy
  337. STELARA [Suspect]
     Active Substance: USTEKINUMAB
  338. STELARA [Suspect]
     Active Substance: USTEKINUMAB
  339. SULFASALAZINE [Suspect]
     Active Substance: SULFASALAZINE
     Indication: Rheumatoid arthritis
  340. SULFASALAZINE [Suspect]
     Active Substance: SULFASALAZINE
     Dosage: 2 GRAM, QD (1 EVERY 1 DAY)
  341. SULFASALAZINE [Suspect]
     Active Substance: SULFASALAZINE
     Dosage: 1000 MILLIGRAM, QD (1 EVERY 1 DAYS)
  342. SULFASALAZINE [Suspect]
     Active Substance: SULFASALAZINE
  343. SULFASALAZINE [Suspect]
     Active Substance: SULFASALAZINE
     Dosage: 1000 MILLIGRAM, QD (1 EVERY 1 DAYS)
  344. SULFASALAZINE [Suspect]
     Active Substance: SULFASALAZINE
  345. SULFASALAZINE [Suspect]
     Active Substance: SULFASALAZINE
     Dosage: 1 GRAM, QD (1 EVERY 1 DAYS)
  346. SULFASALAZINE [Suspect]
     Active Substance: SULFASALAZINE
     Dosage: 1 GRAM, BID (1 EVERY 12 HOURS)
  347. SULFASALAZINE [Suspect]
     Active Substance: SULFASALAZINE
     Dosage: 100 MILLIGRAM, BID (2 EVERY 1 DAYS)
  348. SULFASALAZINE [Suspect]
     Active Substance: SULFASALAZINE
     Dosage: 500 MILLIGRAM, QD (1 EVERY 1 DAYS)
  349. SULFASALAZINE [Suspect]
     Active Substance: SULFASALAZINE
  350. SULFASALAZINE [Suspect]
     Active Substance: SULFASALAZINE
     Dosage: 1 MILLIGRAM, BID (2 EVERY 1 DAYS)
  351. SULFASALAZINE [Suspect]
     Active Substance: SULFASALAZINE
  352. SULFASALAZINE [Suspect]
     Active Substance: SULFASALAZINE
  353. SULFASALAZINE [Suspect]
     Active Substance: SULFASALAZINE
     Dosage: UNK, Q5D (1 EVERY 5 DAYS)
  354. SULFASALAZINE [Suspect]
     Active Substance: SULFASALAZINE
     Dosage: 1 GRAM, BID (1 EVERY 12 HOURS)
  355. SULFASALAZINE [Suspect]
     Active Substance: SULFASALAZINE
     Dosage: 2 MILLIGRAM, BID (2 EVERY 1 DAYS)
  356. SULFASALAZINE [Suspect]
     Active Substance: SULFASALAZINE
     Dosage: 1000 MILLIGRAM, BID (2 EVERY 1 DAYS)
  357. SULFASALAZINE [Suspect]
     Active Substance: SULFASALAZINE
     Dosage: 300 MILLIGRAM, QD (1 EVERY 1 DAYS)
  358. SULFASALAZINE [Suspect]
     Active Substance: SULFASALAZINE
     Dosage: 1 GRAM, BID (1 EVERY 12 HOURS)
  359. SULFASALAZINE [Suspect]
     Active Substance: SULFASALAZINE
     Dosage: 1 GRAM, QD (1 EVERY 1 DAYS)
  360. SULFASALAZINE [Suspect]
     Active Substance: SULFASALAZINE
  361. SULFASALAZINE [Suspect]
     Active Substance: SULFASALAZINE
  362. SULFASALAZINE [Suspect]
     Active Substance: SULFASALAZINE
  363. SULFASALAZINE [Suspect]
     Active Substance: SULFASALAZINE
     Dosage: 1 DOSAGE FORM, Q5D (1 EVERY 5 DAYS)
  364. SULFASALAZINE [Suspect]
     Active Substance: SULFASALAZINE
     Dosage: 1 GRAM, BID (2 EVERY 1 DAYS)
  365. SULFASALAZINE [Suspect]
     Active Substance: SULFASALAZINE
     Dosage: 2 GRAM, QD (1 EVERY 1 DAYS)
  366. SULFASALAZINE [Suspect]
     Active Substance: SULFASALAZINE
     Dosage: 1 GRAM, Q5D (1 EVERY 5 DAYS)
  367. SULFASALAZINE [Suspect]
     Active Substance: SULFASALAZINE
     Dosage: 1000 MILLIGRAM, Q5D (1 EVERY 5 DAYS)
  368. SULFASALAZINE [Suspect]
     Active Substance: SULFASALAZINE
     Dosage: 1 GRAM, QD (1 EVERY 1 DAYS)
  369. SULFASALAZINE [Suspect]
     Active Substance: SULFASALAZINE
     Dosage: 500 MILLIGRAM, QD (1 EVERY 1 DAYS)
  370. TOCILIZUMAB [Suspect]
     Active Substance: TOCILIZUMAB
     Indication: Product used for unknown indication
  371. TOCILIZUMAB [Suspect]
     Active Substance: TOCILIZUMAB
  372. TOFACITINIB CITRATE [Suspect]
     Active Substance: TOFACITINIB CITRATE
     Indication: Rheumatoid arthritis
  373. TOFACITINIB CITRATE [Suspect]
     Active Substance: TOFACITINIB CITRATE
     Indication: Psoriatic arthropathy
     Dosage: 5 MILLIGRAM, QD (1 EVERY 1 DAYS)
  374. TOFACITINIB CITRATE [Suspect]
     Active Substance: TOFACITINIB CITRATE
     Dosage: 5 MILLIGRAM, QW (1 EVERY 1 WEEK)
  375. TOFACITINIB CITRATE [Suspect]
     Active Substance: TOFACITINIB CITRATE
  376. TOFACITINIB CITRATE [Suspect]
     Active Substance: TOFACITINIB CITRATE
     Dosage: 10 MILLIGRAM, QD (1 EVERY 1 DAYS)
  377. PREDNISONE [Suspect]
     Active Substance: PREDNISONE
     Indication: Rheumatoid arthritis
  378. PREDNISONE [Suspect]
     Active Substance: PREDNISONE
  379. XELJANZ [Suspect]
     Active Substance: TOFACITINIB CITRATE
     Indication: Rheumatoid arthritis
  380. XELJANZ [Suspect]
     Active Substance: TOFACITINIB CITRATE
     Dosage: 5 MILLIGRAM, QW (1 EVERY 1 WEEK)
  381. XELJANZ [Suspect]
     Active Substance: TOFACITINIB CITRATE
     Dosage: 5 MILLIGRAM, QD (1 EVERY 1 DAYS)
  382. XELJANZ [Suspect]
     Active Substance: TOFACITINIB CITRATE
  383. XELJANZ [Suspect]
     Active Substance: TOFACITINIB CITRATE
     Dosage: 5 MILLIGRAM, QD (2 EVERY 1 DAYS)
  384. XELJANZ [Suspect]
     Active Substance: TOFACITINIB CITRATE
     Dosage: 10 MILLIGRAM, QD (1 EVERY 1 DAYS)
  385. ACETAMINOPHEN AND CODEINE [Suspect]
     Active Substance: ACETAMINOPHEN\CODEINE PHOSPHATE
     Indication: Product used for unknown indication
  386. ACETAMINOPHEN\OXYCODONE HYDROCHLORIDE [Suspect]
     Active Substance: ACETAMINOPHEN\OXYCODONE HYDROCHLORIDE
     Indication: Product used for unknown indication
  387. CETIRIZINE HYDROCHLORIDE\PSEUDOEPHEDRINE HYDROCHLORIDE [Suspect]
     Active Substance: CETIRIZINE HYDROCHLORIDE\PSEUDOEPHEDRINE HYDROCHLORIDE
     Indication: Product used for unknown indication
  388. LEFLUNOMIDE [Suspect]
     Active Substance: LEFLUNOMIDE
     Indication: Rheumatoid arthritis
  389. CALCIUM GLUBIONATE [Suspect]
     Active Substance: CALCIUM GLUBIONATE
     Indication: Product used for unknown indication
  390. CETRIMIDE [Suspect]
     Active Substance: CETRIMIDE
     Indication: Product used for unknown indication
  391. CHLORAPREP [Suspect]
     Active Substance: CHLORHEXIDINE GLUCONATE\ISOPROPYL ALCOHOL
     Indication: Rheumatoid arthritis
  392. CHLORAPREP [Suspect]
     Active Substance: CHLORHEXIDINE GLUCONATE\ISOPROPYL ALCOHOL
  393. CHLORAPREP [Suspect]
     Active Substance: CHLORHEXIDINE GLUCONATE\ISOPROPYL ALCOHOL
  394. CHLORHEXIDINE [Suspect]
     Active Substance: CHLORHEXIDINE
     Indication: Product used for unknown indication
  395. CHLORHEXIDINE [Suspect]
     Active Substance: CHLORHEXIDINE
  396. DESOXIMETASONE [Suspect]
     Active Substance: DESOXIMETASONE
     Indication: Rheumatoid arthritis
  397. DESOXIMETASONE [Suspect]
     Active Substance: DESOXIMETASONE
  398. DESOXIMETASONE [Suspect]
     Active Substance: DESOXIMETASONE
  399. DESOXIMETASONE [Suspect]
     Active Substance: DESOXIMETASONE
  400. DESOXIMETASONE [Suspect]
     Active Substance: DESOXIMETASONE
  401. DESOXIMETASONE [Suspect]
     Active Substance: DESOXIMETASONE
  402. DESOXIMETASONE [Suspect]
     Active Substance: DESOXIMETASONE
  403. DESOXIMETASONE [Suspect]
     Active Substance: DESOXIMETASONE
     Dosage: 25 MILLIGRAM, QW (1 EVERY 1 WEEK)
  404. ACETAMINOPHEN\PROPOXYPHENE [Suspect]
     Active Substance: ACETAMINOPHEN\PROPOXYPHENE
     Indication: Product used for unknown indication
  405. DICLOFENAC POTASSIUM [Suspect]
     Active Substance: DICLOFENAC POTASSIUM
     Indication: Product used for unknown indication
  406. EMEND [Suspect]
     Active Substance: APREPITANT
     Indication: Product used for unknown indication
  407. FOSAVANCE [Suspect]
     Active Substance: ALENDRONATE SODIUM\CHOLECALCIFEROL
     Indication: Product used for unknown indication
  408. FOSAVANCE [Suspect]
     Active Substance: ALENDRONATE SODIUM\CHOLECALCIFEROL
  409. HUMIRA [Suspect]
     Active Substance: ADALIMUMAB
     Indication: Rheumatoid arthritis
  410. HUMIRA [Suspect]
     Active Substance: ADALIMUMAB
     Indication: Psoriatic arthropathy
     Dosage: 40 MILLIGRAM, QD (1 EVERY 24 HOURS)
  411. HUMIRA [Suspect]
     Active Substance: ADALIMUMAB
  412. HUMIRA [Suspect]
     Active Substance: ADALIMUMAB
  413. HUMIRA [Suspect]
     Active Substance: ADALIMUMAB
  414. HUMIRA [Suspect]
     Active Substance: ADALIMUMAB
  415. HUMIRA [Suspect]
     Active Substance: ADALIMUMAB
     Dosage: 40 MILLIGRAM, QD (1 EVERY 24 HOURS)
  416. HUMIRA [Suspect]
     Active Substance: ADALIMUMAB
  417. HYDROCORTISONE PROBUTATE [Suspect]
     Active Substance: HYDROCORTISONE PROBUTATE
     Indication: Rheumatoid arthritis
  418. HYDROCORTISONE PROBUTATE [Suspect]
     Active Substance: HYDROCORTISONE PROBUTATE
  419. HYDROCORTISONE PROBUTATE [Suspect]
     Active Substance: HYDROCORTISONE PROBUTATE
  420. HYDROCORTISONE PROBUTATE [Suspect]
     Active Substance: HYDROCORTISONE PROBUTATE
  421. KEVZARA [Suspect]
     Active Substance: SARILUMAB
     Indication: Rheumatoid arthritis
  422. LEFLUNOMIDE [Suspect]
     Active Substance: LEFLUNOMIDE
     Indication: Rheumatoid arthritis
  423. LEFLUNOMIDE [Suspect]
     Active Substance: LEFLUNOMIDE
     Dosage: 20 MILLIGRAM, QD (1 EVERY 1 DAYS)
  424. LEFLUNOMIDE [Suspect]
     Active Substance: LEFLUNOMIDE
     Dosage: 10 MILLIGRAM, QD (1 EVERY 1 DAYS)
  425. LEFLUNOMIDE [Suspect]
     Active Substance: LEFLUNOMIDE
  426. LEFLUNOMIDE [Suspect]
     Active Substance: LEFLUNOMIDE
  427. FLUMETHASONE PIVALATE [Suspect]
     Active Substance: FLUMETHASONE PIVALATE
     Indication: Rheumatoid arthritis
  428. FLUMETHASONE PIVALATE [Suspect]
     Active Substance: FLUMETHASONE PIVALATE
  429. FLUMETHASONE PIVALATE [Suspect]
     Active Substance: FLUMETHASONE PIVALATE
  430. METHOTREXATE SODIUM [Suspect]
     Active Substance: METHOTREXATE SODIUM
     Indication: Rheumatoid arthritis
     Dosage: 2 DOSAGE FORM, QD (1 EVERY 1 DAYS)
  431. METHOTREXATE SODIUM [Suspect]
     Active Substance: METHOTREXATE SODIUM
  432. METHOTREXATE SODIUM [Suspect]
     Active Substance: METHOTREXATE SODIUM
     Dosage: 2 DOSAGE FORM, QD (1 EVERY 1 DAYS)
  433. METHOTREXATE SODIUM [Suspect]
     Active Substance: METHOTREXATE SODIUM
  434. METHOTREXATE SODIUM [Suspect]
     Active Substance: METHOTREXATE SODIUM
     Dosage: 25 MILLIGRAM, QW (1 EVERY 1 WEEK)
  435. METHOTREXATE SODIUM [Suspect]
     Active Substance: METHOTREXATE SODIUM
  436. METHOTREXATE SODIUM [Suspect]
     Active Substance: METHOTREXATE SODIUM
  437. METHOTREXATE SODIUM [Suspect]
     Active Substance: METHOTREXATE SODIUM
     Dosage: 25 GRAM, QW (1 EVERY 1 WEEK)
  438. METHOTREXATE SODIUM [Suspect]
     Active Substance: METHOTREXATE SODIUM
     Dosage: 20 MILLIGRAM, QD (1 EVERY 24 HOURS)
  439. METHOTREXATE SODIUM [Suspect]
     Active Substance: METHOTREXATE SODIUM
     Dosage: 1 GRAM, Q5D (1 EVERY 5 DAYS)
  440. METHOTREXATE SODIUM [Suspect]
     Active Substance: METHOTREXATE SODIUM
  441. METHOTREXATE SODIUM [Suspect]
     Active Substance: METHOTREXATE SODIUM
     Dosage: 25 GRAM, Q5D (1 EVERY 5 DAYS)
  442. METHOTREXATE SODIUM [Suspect]
     Active Substance: METHOTREXATE SODIUM
     Dosage: 20 MILLIGRAM, QW (1 EVERY 1 WEEK)
  443. METHOTREXATE SODIUM [Suspect]
     Active Substance: METHOTREXATE SODIUM
     Dosage: 1 DOSAGE FORM, QD (1 EVERY 24 HOURS)
  444. METHOTREXATE SODIUM [Suspect]
     Active Substance: METHOTREXATE SODIUM
  445. METHOTREXATE SODIUM [Suspect]
     Active Substance: METHOTREXATE SODIUM
  446. METHOTREXATE SODIUM [Suspect]
     Active Substance: METHOTREXATE SODIUM
     Dosage: 15 MILLIGRAM, QD (1 EVERY 1 DAYS)
  447. METHOTREXATE SODIUM [Suspect]
     Active Substance: METHOTREXATE SODIUM
     Dosage: 25 MILLIGRAM, QW (1 EVERY 1 WEEK)
  448. METHOTREXATE SODIUM [Suspect]
     Active Substance: METHOTREXATE SODIUM
     Dosage: 20 GRAM, QD (1 EVERY 1 DAYS)
  449. METHOTREXATE SODIUM [Suspect]
     Active Substance: METHOTREXATE SODIUM
     Dosage: 15 MILLIGRAM, QD (1 EVERY 24 HOURS)
  450. METHOTREXATE SODIUM [Suspect]
     Active Substance: METHOTREXATE SODIUM
     Dosage: 25 GRAM, QW  (1 EVERY 1 WEEK)
  451. METHOTREXATE SODIUM [Suspect]
     Active Substance: METHOTREXATE SODIUM
     Dosage: 25 MILLIGRAM, QD (1 EVERY 1 DAY)
  452. METHOTREXATE SODIUM [Suspect]
     Active Substance: METHOTREXATE SODIUM
     Dosage: 25 MILLIGRAM, QD (1 EVERY 24 HOURS)
  453. METHOTREXATE SODIUM [Suspect]
     Active Substance: METHOTREXATE SODIUM
     Dosage: 25 MILLIGRAM, QW (1 EVERY 1 WEEK)
  454. METHOTREXATE SODIUM [Suspect]
     Active Substance: METHOTREXATE SODIUM
  455. METHOTREXATE SODIUM [Suspect]
     Active Substance: METHOTREXATE SODIUM
     Dosage: 20 MILLIGRAM, QD (1 EVERY 24 HOURS)
  456. METHOTREXATE SODIUM [Suspect]
     Active Substance: METHOTREXATE SODIUM
     Dosage: 25 MILLIGRAM, QW (1 EVERY 1 WEEK)
  457. METHYLPREDNISOLONE SODIUM SUCCINATE [Suspect]
     Active Substance: METHYLPREDNISOLONE SODIUM SUCCINATE
     Indication: Product used for unknown indication
  458. NEOMYCIN [Suspect]
     Active Substance: NEOMYCIN
     Indication: Product used for unknown indication
  459. ORENCIA [Suspect]
     Active Substance: ABATACEPT
     Indication: Rheumatoid arthritis
  460. ORENCIA [Suspect]
     Active Substance: ABATACEPT
  461. ORENCIA [Suspect]
     Active Substance: ABATACEPT
  462. ORENCIA [Suspect]
     Active Substance: ABATACEPT
  463. ORENCIA [Suspect]
     Active Substance: ABATACEPT
  464. ORENCIA [Suspect]
     Active Substance: ABATACEPT
  465. ORENCIA [Suspect]
     Active Substance: ABATACEPT
  466. ORENCIA [Suspect]
     Active Substance: ABATACEPT
     Dosage: 3 MILLIGRAM, BID (1 EVERY 12 HOURS)
  467. ORENCIA [Suspect]
     Active Substance: ABATACEPT
  468. OXYCODONE TEREPHTHALATE [Suspect]
     Active Substance: OXYCODONE TEREPHTHALATE
     Indication: Product used for unknown indication
  469. OXYCODONE AND ACETAMINOPHEN [Suspect]
     Active Substance: ACETAMINOPHEN\OXYCODONE HYDROCHLORIDE
     Indication: Product used for unknown indication
  470. PERIOGARD [Suspect]
     Active Substance: CHLORHEXIDINE GLUCONATE
     Indication: Product used for unknown indication
  471. PERIOGARD [Suspect]
     Active Substance: CHLORHEXIDINE GLUCONATE
  472. PLAQUENIL [Suspect]
     Active Substance: HYDROXYCHLOROQUINE SULFATE
     Indication: Rheumatoid arthritis
  473. PLAQUENIL [Suspect]
     Active Substance: HYDROXYCHLOROQUINE SULFATE
     Dosage: 400 MILLIGRAM, QD (1 EVERY 1 DAYS)
  474. PLAQUENIL [Suspect]
     Active Substance: HYDROXYCHLOROQUINE SULFATE
  475. PSEUDOEPHEDRINE [Suspect]
     Active Substance: PSEUDOEPHEDRINE
     Indication: Rheumatoid arthritis
  476. PSEUDOEPHEDRINE [Suspect]
     Active Substance: PSEUDOEPHEDRINE
  477. CETIRIZINE HYDROCHLORIDE\PSEUDOEPHEDRINE HYDROCHLORIDE [Suspect]
     Active Substance: CETIRIZINE HYDROCHLORIDE\PSEUDOEPHEDRINE HYDROCHLORIDE
     Indication: Rheumatoid arthritis
  478. CETIRIZINE HYDROCHLORIDE\PSEUDOEPHEDRINE HYDROCHLORIDE [Suspect]
     Active Substance: CETIRIZINE HYDROCHLORIDE\PSEUDOEPHEDRINE HYDROCHLORIDE
     Indication: Off label use
  479. CETIRIZINE HYDROCHLORIDE\PSEUDOEPHEDRINE HYDROCHLORIDE [Suspect]
     Active Substance: CETIRIZINE HYDROCHLORIDE\PSEUDOEPHEDRINE HYDROCHLORIDE
  480. CETIRIZINE HYDROCHLORIDE\PSEUDOEPHEDRINE HYDROCHLORIDE [Suspect]
     Active Substance: CETIRIZINE HYDROCHLORIDE\PSEUDOEPHEDRINE HYDROCHLORIDE
  481. CETIRIZINE HYDROCHLORIDE\PSEUDOEPHEDRINE HYDROCHLORIDE [Suspect]
     Active Substance: CETIRIZINE HYDROCHLORIDE\PSEUDOEPHEDRINE HYDROCHLORIDE
  482. CETIRIZINE HYDROCHLORIDE\PSEUDOEPHEDRINE HYDROCHLORIDE [Suspect]
     Active Substance: CETIRIZINE HYDROCHLORIDE\PSEUDOEPHEDRINE HYDROCHLORIDE
  483. SULFASALAZINE [Suspect]
     Active Substance: SULFASALAZINE
     Indication: Product used for unknown indication
  484. SULFAMETHOXAZOLE [Suspect]
     Active Substance: SULFAMETHOXAZOLE
     Indication: Product used for unknown indication
  485. SULFAMETHOXAZOLE AND TRIMETHOPRIM [Suspect]
     Active Substance: SULFAMETHOXAZOLE\TRIMETHOPRIM
     Indication: Product used for unknown indication
  486. TRAMADOL HYDROCHLORIDE [Suspect]
     Active Substance: TRAMADOL HYDROCHLORIDE
     Indication: Product used for unknown indication
  487. PANTOPRAZOLE SODIUM ANHYDROUS [Concomitant]
     Active Substance: PANTOPRAZOLE SODIUM ANHYDROUS
     Indication: Product used for unknown indication
  488. ATIVAN [Concomitant]
     Active Substance: LORAZEPAM
     Indication: Anxiety
  489. CAFFEINE [Concomitant]
     Active Substance: CAFFEINE
     Indication: Product used for unknown indication
  490. CALCIUM [Concomitant]
     Active Substance: CALCIUM
     Indication: Product used for unknown indication
  491. CALCIUM GLUBIONATE [Concomitant]
     Active Substance: CALCIUM GLUBIONATE
     Indication: Product used for unknown indication
  492. CHOLECALCIFEROL [Concomitant]
     Active Substance: CHOLECALCIFEROL
     Indication: Product used for unknown indication
  493. CYANOCOBALAMIN [Concomitant]
     Active Substance: CYANOCOBALAMIN
     Indication: Product used for unknown indication
  494. ELBASVIR [Concomitant]
     Active Substance: ELBASVIR
     Indication: Product used for unknown indication
  495. ERGOCALCIFEROL [Concomitant]
     Active Substance: ERGOCALCIFEROL
     Indication: Product used for unknown indication
  496. GLUCOSAMINE [Concomitant]
     Active Substance: GLUCOSAMINE
     Indication: Product used for unknown indication
  497. IBUPROFEN [Concomitant]
     Active Substance: IBUPROFEN
     Indication: Product used for unknown indication
  498. LANSOPRAZOLE [Concomitant]
     Active Substance: LANSOPRAZOLE
     Indication: Product used for unknown indication
  499. LEVOTHYROXINE SODIUM [Concomitant]
     Active Substance: LEVOTHYROXINE SODIUM
     Indication: Product used for unknown indication
  500. LISINOPRIL [Concomitant]
     Active Substance: LISINOPRIL
     Indication: Product used for unknown indication
  501. LORAZEPAM [Concomitant]
     Active Substance: LORAZEPAM
     Indication: Product used for unknown indication
  502. MAGNESIUM [Concomitant]
     Active Substance: MAGNESIUM
     Indication: Product used for unknown indication
  503. MELOXICAM [Concomitant]
     Active Substance: MELOXICAM
     Indication: Product used for unknown indication
  504. PIROXICAM [Concomitant]
     Active Substance: PIROXICAM
     Indication: Product used for unknown indication
  505. PREDNISOLONE [Concomitant]
     Active Substance: PREDNISOLONE
     Indication: Product used for unknown indication
  506. QUETIAPINE [Concomitant]
     Active Substance: QUETIAPINE
     Indication: Product used for unknown indication
  507. QUETIAPINE FUMARATE [Concomitant]
     Active Substance: QUETIAPINE FUMARATE
     Indication: Product used for unknown indication
  508. RISEDRONATE SODIUM [Concomitant]
     Active Substance: RISEDRONATE SODIUM
     Indication: Product used for unknown indication
  509. SULFASALAZINE [Concomitant]
     Active Substance: SULFASALAZINE
     Indication: Product used for unknown indication
  510. FISH OIL [Concomitant]
     Active Substance: FISH OIL
     Indication: Product used for unknown indication
  511. VITAMIN D3 [Concomitant]
     Active Substance: CHOLECALCIFEROL
     Indication: Product used for unknown indication
  512. VITAMIN C [Concomitant]
     Active Substance: ASCORBIC ACID
  513. ACETAMINOPHEN [Concomitant]
     Active Substance: ACETAMINOPHEN
  514. CALCIUM CARBONATE [Concomitant]
     Active Substance: CALCIUM CARBONATE
     Indication: Product used for unknown indication
  515. CALCIUM GLUCONATE [Concomitant]
     Active Substance: CALCIUM GLUCONATE
  516. CODEINE [Concomitant]
     Active Substance: CODEINE
  517. DESOGESTREL AND ETHINYL ESTRADIOL [Concomitant]
     Active Substance: DESOGESTREL\ETHINYL ESTRADIOL
  518. LISINOPRIL [Concomitant]
     Active Substance: LISINOPRIL
  519. PANTOPRAZOLE SODIUM [Concomitant]
     Active Substance: PANTOPRAZOLE SODIUM
  520. ACETAMINOPHEN\CAFFEINE\DIHYDROCODEINE BITARTRATE [Concomitant]
     Active Substance: ACETAMINOPHEN\CAFFEINE\DIHYDROCODEINE BITARTRATE

REACTIONS (127)
  - Drug intolerance [Unknown]
  - Product use in unapproved indication [Unknown]
  - Drug ineffective [Unknown]
  - Off label use [Unknown]
  - Lupus vulgaris [Not Recovered/Not Resolved]
  - Ulcer haemorrhage [Fatal]
  - Migraine [Fatal]
  - Taste disorder [Fatal]
  - Pain [Fatal]
  - Memory impairment [Fatal]
  - Vomiting [Fatal]
  - Paraesthesia [Fatal]
  - Nasopharyngitis [Fatal]
  - Decreased appetite [Fatal]
  - Drug hypersensitivity [Fatal]
  - Gait inability [Fatal]
  - Irritable bowel syndrome [Fatal]
  - Liver disorder [Fatal]
  - Lower respiratory tract infection [Fatal]
  - Malaise [Fatal]
  - Mobility decreased [Fatal]
  - Muscle injury [Fatal]
  - Nausea [Fatal]
  - Pruritus [Fatal]
  - Sciatica [Fatal]
  - Sinusitis [Fatal]
  - Abdominal discomfort [Fatal]
  - Abdominal pain [Fatal]
  - Abdominal pain upper [Fatal]
  - Adjustment disorder with depressed mood [Fatal]
  - Alopecia [Fatal]
  - Amnesia [Fatal]
  - Anti-cyclic citrullinated peptide antibody positive [Fatal]
  - Anxiety [Fatal]
  - Arthralgia [Fatal]
  - Arthropathy [Fatal]
  - Asthenia [Fatal]
  - Asthma [Fatal]
  - Autoimmune disorder [Fatal]
  - Blepharospasm [Fatal]
  - Blister [Fatal]
  - Blood cholesterol [Fatal]
  - Blood cholesterol increased [Fatal]
  - Bursitis [Fatal]
  - C-reactive protein [Fatal]
  - C-reactive protein abnormal [Fatal]
  - C-reactive protein increased [Fatal]
  - Chest pain [Fatal]
  - Confusional state [Fatal]
  - Contusion [Fatal]
  - Deep vein thrombosis postoperative [Fatal]
  - Delirium [Fatal]
  - Diarrhoea [Fatal]
  - Discomfort [Fatal]
  - Dislocation of vertebra [Fatal]
  - Dizziness [Fatal]
  - Dry mouth [Fatal]
  - Duodenal ulcer perforation [Fatal]
  - Dyspnoea [Fatal]
  - Epilepsy [Fatal]
  - Exposure during pregnancy [Fatal]
  - Facet joint syndrome [Fatal]
  - Fatigue [Fatal]
  - Fibromyalgia [Fatal]
  - Folliculitis [Fatal]
  - Gait disturbance [Fatal]
  - Gastrointestinal disorder [Fatal]
  - Gastrooesophageal reflux disease [Fatal]
  - General physical health deterioration [Fatal]
  - Glossodynia [Fatal]
  - Grip strength decreased [Fatal]
  - Hand deformity [Fatal]
  - Headache [Fatal]
  - Helicobacter infection [Fatal]
  - Hepatic enzyme increased [Fatal]
  - Hip arthroplasty [Fatal]
  - Hypercholesterolaemia [Fatal]
  - Hypersensitivity [Fatal]
  - Hypertension [Fatal]
  - Hypoaesthesia [Fatal]
  - Ill-defined disorder [Fatal]
  - Impaired healing [Fatal]
  - Infection [Fatal]
  - Infusion related reaction [Fatal]
  - Injury [Fatal]
  - Joint range of motion decreased [Fatal]
  - Joint swelling [Fatal]
  - Knee arthroplasty [Fatal]
  - Lip dry [Fatal]
  - Live birth [Fatal]
  - Lower limb fracture [Fatal]
  - Liver injury [Fatal]
  - Lung disorder [Fatal]
  - Maternal exposure during pregnancy [Fatal]
  - Muscle spasms [Fatal]
  - Muscular weakness [Fatal]
  - Musculoskeletal pain [Fatal]
  - Musculoskeletal stiffness [Fatal]
  - Night sweats [Fatal]
  - Obesity [Fatal]
  - Oedema [Fatal]
  - Osteoarthritis [Fatal]
  - Pemphigus [Fatal]
  - Pericarditis [Fatal]
  - Peripheral swelling [Fatal]
  - Peripheral venous disease [Fatal]
  - Pregnancy [Fatal]
  - Psoriatic arthropathy [Fatal]
  - Pyrexia [Fatal]
  - Rash [Fatal]
  - Rheumatic fever [Fatal]
  - Rheumatoid arthritis [Fatal]
  - Rheumatoid factor positive [Fatal]
  - Road traffic accident [Fatal]
  - Sleep disorder [Fatal]
  - Sleep disorder due to general medical condition, insomnia type [Fatal]
  - Stomatitis [Fatal]
  - Swelling [Fatal]
  - Swollen joint count increased [Fatal]
  - Synovitis [Fatal]
  - Systemic lupus erythematosus [Fatal]
  - Type 2 diabetes mellitus [Fatal]
  - Urticaria [Fatal]
  - Weight decreased [Fatal]
  - Weight increased [Fatal]
  - Wheezing [Fatal]
  - Wound [Fatal]
